FAERS Safety Report 8027757-5 (Version None)
Quarter: 2012Q1

REPORT INFORMATION
  Report Type: 
  Country: None (occurrence: None)
  Receive Date: 20120106
  Receipt Date: 20120106
  Transmission Date: 20120608
  Serious: Yes (Death)
  Sender: FDA-Public Use
  Company Number: None

PATIENT
  Age: 86 Year
  Sex: Female
  Weight: 56.699 kg

DRUGS (1)
  1. PRADAXA [Suspect]

REACTIONS (9)
  - RENAL FAILURE [None]
  - NEPHROPATHY TOXIC [None]
  - CONFUSIONAL STATE [None]
  - ASTHENIA [None]
  - HAEMORRHAGE [None]
  - HEPATIC FAILURE [None]
  - HEPATOTOXICITY [None]
  - FEELING ABNORMAL [None]
  - UNEVALUABLE EVENT [None]
